FAERS Safety Report 8421957-8 (Version None)
Quarter: 2012Q2

REPORT INFORMATION
  Report Type: 
  Country: None (occurrence: None)
  Receive Date: 20120605
  Receipt Date: 20120605
  Transmission Date: 20120825
  Serious: No
  Sender: FDA-Public Use
  Company Number: None

PATIENT
  Sex: Female
  Weight: 42.6381 kg

DRUGS (3)
  1. PAXIL [Suspect]
     Indication: ANXIETY
     Dosage: 5 MG 1 X A DAY
     Dates: start: 20120512
  2. PAXIL [Suspect]
     Indication: OBSESSIVE-COMPULSIVE DISORDER
     Dosage: 5 MG 1 X A DAY
     Dates: start: 20120512
  3. PAXIL [Suspect]
     Indication: DEPRESSION
     Dosage: 5 MG 1 X A DAY
     Dates: start: 20120512

REACTIONS (1)
  - IRRITABLE BOWEL SYNDROME [None]
